FAERS Safety Report 16960411 (Version 1)
Quarter: 2019Q4

REPORT INFORMATION
  Report Type: Spontaneous
  Country: IE (occurrence: IE)
  Receive Date: 20191025
  Receipt Date: 20191025
  Transmission Date: 20200122
  Serious: Yes (Disabling)
  Sender: FDA-Public Use
  Company Number: IE-009507513-1910IRL014878

PATIENT
  Age: 61 Year
  Sex: Male

DRUGS (4)
  1. TIMOLOL MALEATE. [Concomitant]
     Active Substance: TIMOLOL MALEATE
  2. AZOPT [Suspect]
     Active Substance: BRINZOLAMIDE
     Indication: GLAUCOMA
     Dosage: 1 DROP, OU, BID (IN THE MORNING AND EVENING)
     Route: 047
     Dates: start: 20180828, end: 20180908
  3. MONOPROST [Concomitant]
     Active Substance: LATANOPROST
  4. DORZOLAMIDE HYDROCHLORIDE. [Suspect]
     Active Substance: DORZOLAMIDE HYDROCHLORIDE
     Indication: GLAUCOMA
     Dosage: 1 DROP, OU, BID (IN THE MORNING AND EVENING)
     Route: 047
     Dates: start: 20180918, end: 20180918

REACTIONS (2)
  - Back pain [Recovered/Resolved]
  - Back pain [Recovered/Resolved]

NARRATIVE: CASE EVENT DATE: 20180902
